FAERS Safety Report 12333567 (Version 2)
Quarter: 2016Q4

REPORT INFORMATION
  Report Type: Spontaneous
  Country: US (occurrence: US)
  Receive Date: 20160504
  Receipt Date: 20161013
  Transmission Date: 20170207
  Serious: No
  Sender: FDA-Public Use
  Company Number: US-ROCHE-1712900

PATIENT
  Sex: Male

DRUGS (3)
  1. ESBRIET [Suspect]
     Active Substance: PIRFENIDONE
     Indication: IDIOPATHIC PULMONARY FIBROSIS
     Route: 048
     Dates: start: 20150418
  2. VITAMIN C [Concomitant]
     Active Substance: ASCORBIC ACID
  3. AMBIEN [Concomitant]
     Active Substance: ZOLPIDEM TARTRATE

REACTIONS (5)
  - Headache [Unknown]
  - Genital atrophy [Unknown]
  - Gastrointestinal disorder [Unknown]
  - Sexual dysfunction [Unknown]
  - Dizziness [Unknown]
